FAERS Safety Report 17391555 (Version 1)
Quarter: 2020Q1

REPORT INFORMATION
  Report Type: Spontaneous
  Country: DE (occurrence: DE)
  Receive Date: 20200207
  Receipt Date: 20200207
  Transmission Date: 20200409
  Serious: Yes (Hospitalization)
  Sender: FDA-Public Use
  Company Number: DE-TEVA-2020-DE-1182431

PATIENT
  Sex: Female

DRUGS (6)
  1. TAVOR [Concomitant]
  2. TRIMIPRAMINE [Suspect]
     Active Substance: TRIMIPRAMINE
     Dosage: SEVERAL TABLETS
  3. ZYPREXA [Suspect]
     Active Substance: OLANZAPINE
     Dosage: SUSPECTED OVERDOSE: DOSAGE UNKNOWN
     Route: 065
  4. CIPRAMIL [CITALOPRAM HYDROCHLORIDE] [Suspect]
     Active Substance: CITALOPRAM HYDROCHLORIDE
     Dosage: SUSPECTED OVERDOSE: DOSAGE UNKNOWN
  5. ZYPREXA [Suspect]
     Active Substance: OLANZAPINE
     Dosage: 10 MG
     Route: 048
  6. CIPRAMIL [CITALOPRAM HYDROCHLORIDE] [Suspect]
     Active Substance: CITALOPRAM HYDROCHLORIDE
     Route: 048

REACTIONS (2)
  - Overdose [Unknown]
  - Suicide attempt [Unknown]

NARRATIVE: CASE EVENT DATE: 200407
